FAERS Safety Report 4512854-9 (Version None)
Quarter: 2004Q4

REPORT INFORMATION
  Report Type: 
  Country: None (occurrence: None)
  Receive Date: 20041119
  Receipt Date: 20041119
  Transmission Date: 20050328
  Serious: Yes (Hospitalization)
  Sender: FDA-Public Use
  Company Number: None

PATIENT
  Age: 39 Year
  Sex: Female
  Weight: 58.9676 kg

DRUGS (8)
  1. PROPOFOL [Suspect]
     Indication: SEDATION
     Dosage: 300 MG OVER 45^ - 1 HR
  2. VERSED [Suspect]
     Dosage: 1 MG
  3. FENTANYL [Suspect]
     Dosage: 125MCG
  4. CELEXA [Concomitant]
  5. WEIGHTSMART [Concomitant]
  6. VITS [Concomitant]
  7. CA++ [Concomitant]
  8. AMPICILLIN [Concomitant]

REACTIONS (7)
  - ANTICHOLINERGIC SYNDROME [None]
  - ASTHENIA [None]
  - COMA [None]
  - ERYTHEMA [None]
  - LETHARGY [None]
  - MYDRIASIS [None]
  - TREMOR [None]
